FAERS Safety Report 6664667-X (Version None)
Quarter: 2010Q1

REPORT INFORMATION
  Report Type: 
  Country: None (occurrence: None)
  Receive Date: 20100330
  Receipt Date: 20090907
  Transmission Date: 20100710
  Serious: Yes (Hospitalization)
  Sender: FDA-Public Use
  Company Number: FR-GUERBET-20090099

PATIENT
  Age: 39 Year
  Sex: Male

DRUGS (9)
  1. HEXABRIX [Suspect]
     Indication: ARTERIOGRAM CORONARY
     Dosage: UNSPECIFIED UNIT, UNSPECIFIED INTERNAL,  INTRAVENOUS (NOT OTHERWISE SPECIFIED)
     Route: 042
     Dates: start: 20090624, end: 20090624
  2. SECTRAL [Concomitant]
  3. PROCORALAN: / IVABRADINE [Concomitant]
  4. RANITIDINE HCL [Concomitant]
  5. OMACOR: / DOCOSAHEXAENOIC ACID - EICOSAPENTAENOIC ACID - A-TOCOPHEROL [Concomitant]
  6. KARDEGIC:  / LYSINE ACETYLSALICYLATE [Concomitant]
  7. PLAVIX [Concomitant]
  8. ATORVASTATIN CALCIUM [Concomitant]
  9. PERINDOPRIL ERBUMINE [Concomitant]

REACTIONS (1)
  - ANAPHYLACTIC SHOCK [None]
